FAERS Safety Report 20554133 (Version 1)
Quarter: 2022Q1

REPORT INFORMATION
  Report Type: Spontaneous
  Country: US (occurrence: US)
  Receive Date: 20220304
  Receipt Date: 20220304
  Transmission Date: 20220423
  Serious: No
  Sender: FDA-Public Use
  Company Number: US-TAKEDA-2022TUS014630

PATIENT
  Age: 73 Year

DRUGS (2)
  1. GAMMAGARD LIQUID [Suspect]
     Active Substance: HUMAN IMMUNOGLOBULIN G
     Indication: Product used for unknown indication
     Dosage: 20 GRAM
     Route: 065
  2. GAMMAGARD LIQUID [Suspect]
     Active Substance: HUMAN IMMUNOGLOBULIN G
     Dosage: 30 GRAM, BID
     Route: 065

REACTIONS (4)
  - Chills [Unknown]
  - Cough [Unknown]
  - Wheezing [Unknown]
  - Back pain [Unknown]

NARRATIVE: CASE EVENT DATE: 20220222
